FAERS Safety Report 9220592 (Version 3)
Quarter: 2020Q1

REPORT INFORMATION
  Report Type: Report from Study
  Country: MX (occurrence: MX)
  Receive Date: 20130409
  Receipt Date: 20200108
  Transmission Date: 20200409
  Serious: Yes (Other)
  Sender: FDA-Public Use
  Company Number: PHHY2013MX034416

PATIENT
  Age: 81 Year
  Sex: Female
  Weight: 51 kg

DRUGS (3)
  1. EXFORGE [Suspect]
     Active Substance: AMLODIPINE BESYLATE\VALSARTAN
     Indication: HYPERTENSION
     Dosage: 1 DF (160/5 MG), QD
     Route: 048
     Dates: start: 200808, end: 200908
  2. EXFORGE [Suspect]
     Active Substance: AMLODIPINE BESYLATE\VALSARTAN
     Dosage: 1.5 DF (160/5MG), QD
     Route: 048
     Dates: start: 200908
  3. CLONAZEPAM. [Concomitant]
     Active Substance: CLONAZEPAM
     Indication: NERVOUSNESS
     Dosage: 1 UKN, DAILY
     Route: 065

REACTIONS (14)
  - Cataract [Recovered/Resolved]
  - Visual impairment [Unknown]
  - Stress [Recovered/Resolved]
  - Incorrect dose administered [Unknown]
  - Blood pressure increased [Unknown]
  - Eye disorder [Recovered/Resolved]
  - Dyspnoea [Not Recovered/Not Resolved]
  - Ocular neoplasm [Recovered/Resolved]
  - Amnesia [Not Recovered/Not Resolved]
  - Product prescribing error [Unknown]
  - Chronic obstructive pulmonary disease [Not Recovered/Not Resolved]
  - Rash [Recovered/Resolved]
  - Wrong technique in product usage process [Unknown]
  - Memory impairment [Not Recovered/Not Resolved]

NARRATIVE: CASE EVENT DATE: 200908
